FAERS Safety Report 12039951 (Version 4)
Quarter: 2016Q1

REPORT INFORMATION
  Report Type: Spontaneous
  Country: JP (occurrence: JP)
  Receive Date: 20160208
  Receipt Date: 20160321
  Transmission Date: 20160526
  Serious: Yes (Death, Other)
  Sender: FDA-Public Use
  Company Number: JP-JNJFOC-20160204343

PATIENT
  Age: 82 Year
  Sex: Male

DRUGS (3)
  1. ZYTIGA [Suspect]
     Active Substance: ABIRATERONE ACETATE
     Indication: PROSTATE CANCER
     Dosage: 500 MG OR 750 MG
     Route: 048
     Dates: start: 20151109, end: 20151130
  2. PREDNISOLONE. [Concomitant]
     Active Substance: PREDNISOLONE
     Indication: PROSTATE CANCER
     Route: 065
  3. ZYTIGA [Suspect]
     Active Substance: ABIRATERONE ACETATE
     Indication: PROSTATE CANCER
     Route: 048
     Dates: start: 20151026, end: 20151108

REACTIONS (9)
  - Prostatic specific antigen increased [Unknown]
  - White blood cell count increased [Unknown]
  - Prescribed underdose [Unknown]
  - Metastases to bone [Unknown]
  - Brain stem haemorrhage [Fatal]
  - Prostate cancer [Unknown]
  - C-reactive protein increased [Unknown]
  - Thrombocytopenia [Not Recovered/Not Resolved]
  - Off label use [Unknown]

NARRATIVE: CASE EVENT DATE: 20151109
